FAERS Safety Report 6906774-X (Version None)
Quarter: 2010Q3

REPORT INFORMATION
  Report Type: 
  Country: None (occurrence: None)
  Receive Date: 20100804
  Receipt Date: 20100726
  Transmission Date: 20110219
  Serious: No
  Sender: FDA-Public Use
  Company Number: US-BAYER-201029101NA

PATIENT
  Age: 69 Year
  Sex: Female

DRUGS (5)
  1. AVELOX [Suspect]
     Indication: COUGH
     Dosage: TOTAL DAILY DOSE: 400 MG  UNIT DOSE: 400 MG
     Route: 048
     Dates: start: 20100719, end: 20100721
  2. PREMARIN [Concomitant]
  3. PROTONIX [Concomitant]
  4. LISINOPRIL [Concomitant]
     Dosage: 40 MG
  5. NORVASC [Concomitant]
     Dosage: 10 MG

REACTIONS (3)
  - DIZZINESS [None]
  - SWOLLEN TONGUE [None]
  - TONGUE DISCOLOURATION [None]
